FAERS Safety Report 5800675-6 (Version None)
Quarter: 2008Q3

REPORT INFORMATION
  Report Type: 
  Country: None (occurrence: None)
  Receive Date: 20080703
  Receipt Date: 20080624
  Transmission Date: 20090109
  Serious: Yes (Death, Hospitalization)
  Sender: FDA-Public Use
  Company Number: AT-ROCHE-569905

PATIENT
  Sex: Male
  Weight: 65 kg

DRUGS (10)
  1. CAPECITABINE [Suspect]
     Dosage: FREQUENCY REPORTED AS D1-D7.
     Route: 048
     Dates: start: 20080319, end: 20080527
  2. BEVACIZUMAB [Suspect]
     Dosage: FREQUENCY REPORTED AS Q=14. FORM: INFUSION.
     Route: 042
     Dates: start: 20080319, end: 20080527
  3. OXALIPLATIN [Suspect]
     Dosage: FREQUENCY REPORTED AS Q=14.FORM: INFUSION.
     Route: 042
     Dates: start: 20080319, end: 20080527
  4. NEXIUM [Concomitant]
     Dosage: STOP DATE REPORTED AS JUNE 2008.
     Dates: start: 20080501, end: 20080601
  5. METOCLOPRAMIDE HYDROCHLORIDE [Concomitant]
     Dosage: STOP DATE REPORTED AS JUNE 2008.
     Dates: start: 20080501, end: 20080601
  6. NOVALGIN [Concomitant]
     Dosage: STOP DATE REPORTED AS JUNE 2008.
     Dates: start: 20080501, end: 20080601
  7. MUCOBENE [Concomitant]
     Dosage: STOP DATE REPORTED AS JUNE 2008.
     Dates: start: 20080501, end: 20080601
  8. ESCITALOPRAM [Concomitant]
     Dosage: STOP DATE REPORTED AS JUNE 2008.
     Dates: start: 20080501, end: 20080601
  9. XANOR [Concomitant]
     Dosage: STOP DATE REPORTED AS JUNE 2008.
     Dates: start: 20080501, end: 20080601
  10. LOVENOX [Concomitant]
     Dosage: STOP DATE REPORTED AS JUNE 2008.
     Dates: start: 20080523, end: 20080601

REACTIONS (1)
  - PERFORMANCE STATUS DECREASED [None]
